FAERS Safety Report 7401810-9 (Version None)
Quarter: 2011Q1

REPORT INFORMATION
  Report Type: 
  Country: None (occurrence: None)
  Receive Date: 20110329
  Receipt Date: 20110315
  Transmission Date: 20110831
  Serious: Yes (Other)
  Sender: FDA-Public Use
  Company Number: 029272

PATIENT
  Sex: Female

DRUGS (5)
  1. XANAX [Concomitant]
  2. CABIMAZOLE [Concomitant]
  3. CIMZIA [Suspect]
     Indication: RHEUMATOID ARTHRITIS
     Dosage: 400 MG, 1X/15 DAYS, SUBCUTANEOUS
     Route: 058
     Dates: start: 20110309
  4. PREDNISOLONE [Concomitant]
  5. NEURONTIN [Concomitant]

REACTIONS (5)
  - THIRST [None]
  - URINE OUTPUT INCREASED [None]
  - DIZZINESS [None]
  - NEUROPATHY PERIPHERAL [None]
  - MUSCLE SPASMS [None]
